FAERS Safety Report 8743425 (Version 5)
Quarter: 2012Q4

REPORT INFORMATION
  Report Type: 
  Country: US (occurrence: US)
  Receive Date: 20120824
  Receipt Date: 20121204
  Transmission Date: 20130627
  Serious: Yes (Other)
  Sender: FDA-Public Use
  Company Number: US-FRI-1000037929

PATIENT
  Age: 75 Year
  Sex: Female

DRUGS (14)
  1. VIIBRYD [Suspect]
     Indication: DEPRESSION
     Dosage: 10 mg
     Route: 048
     Dates: start: 20120526, end: 20120910
  2. VIIBRYD [Suspect]
     Indication: ANXIETY
  3. VIIBRYD [Suspect]
     Indication: DEPRESSION
     Dosage: 20 mg
     Route: 048
     Dates: start: 20120911, end: 20120925
  4. VIIBRYD [Suspect]
     Indication: ANXIETY
     Dosage: 10 mg
     Route: 048
     Dates: start: 20120926
  5. COENZYME Q10 [Concomitant]
     Indication: HYPERTENSION
     Dosage: 50 MG
  6. SIMVASTATIN [Concomitant]
     Indication: BLOOD CHOLESTEROL INCREASED
     Dosage: 20mg
  7. LOSARTAN [Concomitant]
     Indication: HYPERTENSION
     Dosage: 50 mg QAM
  8. ALPRAZOLAM [Concomitant]
     Indication: SPINAL OSTEOARTHRITIS
     Dosage: 1 mg QHS
  9. ALPRAZOLAM [Concomitant]
     Indication: ANXIETY
     Dosage: 0.5 mg in am and at 1600
  10. METOPROLOL SUCCINATE [Concomitant]
     Indication: HYPERTENSION
     Dosage: 50 mg
     Dates: end: 20121125
  11. METOPROLOL SUCCINATE [Concomitant]
     Dosage: 75 mg
     Dates: start: 20121126
  12. HYDROCHLOROTHIAZIDE [Concomitant]
     Indication: HYPERTENSION
     Dosage: 12.5 mg
  13. EYE VITAMINS [Concomitant]
     Indication: MACULAR DEGENERATION
  14. SERTRALINE [Concomitant]

REACTIONS (14)
  - Blood pressure increased [Not Recovered/Not Resolved]
  - Palpitations [Not Recovered/Not Resolved]
  - Tinnitus [Not Recovered/Not Resolved]
  - Drug ineffective [Recovered/Resolved]
  - Anxiety [Recovering/Resolving]
  - Tremor [Recovered/Resolved]
  - Headache [Recovering/Resolving]
  - Ear discomfort [Recovering/Resolving]
  - Paraesthesia [Recovered/Resolved]
  - Feeling hot [Recovering/Resolving]
  - Abnormal dreams [Not Recovered/Not Resolved]
  - Insomnia [Not Recovered/Not Resolved]
  - Thyroid neoplasm [Not Recovered/Not Resolved]
  - Gait disturbance [Not Recovered/Not Resolved]
